FAERS Safety Report 24567526 (Version 2)
Quarter: 2024Q4

REPORT INFORMATION
  Report Type: Report from Study
  Country: US (occurrence: US)
  Receive Date: 20241031
  Receipt Date: 20241125
  Transmission Date: 20250114
  Serious: Yes (Hospitalization)
  Sender: ABBVIE
  Company Number: US-ABBVIE-5984636

PATIENT
  Age: 75 Year
  Sex: Female

DRUGS (3)
  1. DUOPA [Suspect]
     Active Substance: CARBIDOPA\LEVODOPA
     Indication: Product used for unknown indication
     Dosage: LAST ADMIN DATE 2024
     Route: 050
     Dates: start: 20240722
  2. DUOPA [Suspect]
     Active Substance: CARBIDOPA\LEVODOPA
     Dosage: CONTINUOUS DOSE INCREASE
     Route: 050
     Dates: start: 2024, end: 2024
  3. DUOPA [Suspect]
     Active Substance: CARBIDOPA\LEVODOPA
     Dosage: THE PATIENT HAD PROBABLY CLOSE TO 10 DIFFERENT DOSES, EACH DOSE?HIGHER OR LOWER
     Route: 050
     Dates: start: 2024

REACTIONS (3)
  - Fall [Unknown]
  - Dizziness [Unknown]
  - Tremor [Recovering/Resolving]

NARRATIVE: CASE EVENT DATE: 20240101
